FAERS Safety Report 5215231-0 (Version None)
Quarter: 2007Q1

REPORT INFORMATION
  Report Type: 
  Country: None (occurrence: None)
  Receive Date: 20070117
  Receipt Date: 20070103
  Transmission Date: 20070707
  Serious: Yes (Death, Hospitalization)
  Sender: FDA-Public Use
  Company Number: 234227

PATIENT
  Age: 52 Year
  Sex: Female
  Weight: 56 kg

DRUGS (12)
  1. AVASTIN [Suspect]
     Indication: COLORECTAL CANCER METASTATIC
     Dosage: 7.5 MG/KG, Q3W, INTRAVENOUS
     Route: 042
     Dates: start: 20060609
  2. CAPECITABINE (CAPECITABINE) [Suspect]
     Indication: COLORECTAL CANCER METASTATIC
     Dosage: 2500 MG/M2, ORAL
     Route: 048
     Dates: start: 20060609
  3. CELEBREX [Concomitant]
  4. NEXIUM [Concomitant]
  5. TRAMADOL HCL [Concomitant]
  6. OXYCODONE HCL [Concomitant]
  7. PANADOL (ACETAMINOPHEN) [Concomitant]
  8. MORPHINE [Concomitant]
  9. OXYCONTIN [Concomitant]
  10. SENOKOT [Concomitant]
  11. LACTULOSE [Concomitant]
  12. CONCOMITANT DRUG (GENERIC COMPONENT(S)) [Concomitant]

REACTIONS (2)
  - DISEASE PROGRESSION [None]
  - INTESTINAL OBSTRUCTION [None]
